FAERS Safety Report 12659380 (Version 4)
Quarter: 2017Q1

REPORT INFORMATION
  Report Type: Report from Study
  Country: US (occurrence: US)
  Receive Date: 20160817
  Receipt Date: 20170310
  Transmission Date: 20170428
  Serious: Yes (Other)
  Sender: FDA-Public Use
  Company Number: PHEH2016US019823

PATIENT
  Sex: Male

DRUGS (1)
  1. ENTRESTO [Suspect]
     Active Substance: SACUBITRIL\VALSARTAN
     Indication: PRODUCT USED FOR UNKNOWN INDICATION
     Dosage: 50 MG, BID
     Route: 048

REACTIONS (16)
  - Abdominal discomfort [Unknown]
  - Decreased appetite [Unknown]
  - Influenza [Unknown]
  - Nasal congestion [Unknown]
  - Dizziness [Unknown]
  - Hypertrophic cardiomyopathy [Unknown]
  - Dry mouth [Unknown]
  - Dyslexia [Unknown]
  - Malaise [Unknown]
  - Fatigue [Unknown]
  - Diarrhoea [Unknown]
  - Angioedema [Unknown]
  - Constipation [Unknown]
  - Rash pruritic [Unknown]
  - Dyspnoea [Unknown]
  - Rash [Unknown]
